FAERS Safety Report 19383335 (Version 2)
Quarter: 2021Q2

REPORT INFORMATION
  Report Type: Spontaneous
  Country: US (occurrence: US)
  Receive Date: 20210607
  Receipt Date: 20210621
  Transmission Date: 20210717
  Serious: Yes (Other)
  Sender: FDA-Public Use
  Company Number: US-PFIZER INC-2021376848

PATIENT
  Age: 59 Year
  Sex: Female

DRUGS (2)
  1. NIVESTYM [Suspect]
     Active Substance: FILGRASTIM-AAFI
     Dosage: 480 UG
  2. NIVESTYM [Suspect]
     Active Substance: FILGRASTIM-AAFI
     Dosage: 300 MG DAILY FOR 3 DAYS EVERY 14 DAYS

REACTIONS (3)
  - White blood cell count decreased [Unknown]
  - Product prescribing error [Unknown]
  - Off label use [Unknown]
